FAERS Safety Report 9846056 (Version 2)
Quarter: 2014Q1

REPORT INFORMATION
  Report Type: Spontaneous
  Country: ZA (occurrence: ZA)
  Receive Date: 20140127
  Receipt Date: 20140224
  Transmission Date: 20141002
  Serious: Yes (Hospitalization, Other)
  Sender: FDA-Public Use
  Company Number: ZA-SA-2014SA008600

PATIENT
  Age: 43 Year
  Sex: Male

DRUGS (2)
  1. THYROGEN [Suspect]
     Indication: DIAGNOSTIC PROCEDURE
     Route: 030
     Dates: start: 20131209, end: 20131210
  2. IODINE [Concomitant]
     Indication: DIAGNOSTIC PROCEDURE
     Dates: start: 20131211, end: 20131211

REACTIONS (6)
  - Loss of consciousness [Recovered/Resolved]
  - White blood cell count decreased [Recovered/Resolved]
  - Hepatic failure [Recovered/Resolved]
  - Jaundice [Recovered/Resolved]
  - Gastroenteritis viral [Unknown]
  - Fatigue [Recovered/Resolved]
